FAERS Safety Report 20059353 (Version 1)
Quarter: 2021Q4

REPORT INFORMATION
  Report Type: Spontaneous
  Country: US (occurrence: US)
  Receive Date: 20211111
  Receipt Date: 20211111
  Transmission Date: 20220304
  Serious: Yes (Death, Hospitalization)
  Sender: FDA-Public Use
  Company Number: US-MYLANLABS-2021M1082643

PATIENT
  Age: 60 Year
  Sex: Female

DRUGS (3)
  1. METHOTREXATE [Interacting]
     Active Substance: METHOTREXATE
     Indication: Systemic lupus erythematosus
     Dosage: 25 MILLIGRAM, QW
     Route: 065
     Dates: end: 202105
  2. RITUXIMAB [Interacting]
     Active Substance: RITUXIMAB
     Indication: Systemic lupus erythematosus
     Dosage: UNK
     Route: 065
  3. APIXABAN [Concomitant]
     Active Substance: APIXABAN
     Indication: Atrial fibrillation
     Dosage: UNK
     Route: 065
     Dates: end: 202105

REACTIONS (11)
  - COVID-19 pneumonia [Fatal]
  - Brain death [Fatal]
  - Drug interaction [Fatal]
  - Acute respiratory failure [Unknown]
  - Disseminated intravascular coagulation [Unknown]
  - Cerebrovascular disorder [Unknown]
  - Subarachnoid haemorrhage [Unknown]
  - Superior sagittal sinus thrombosis [Unknown]
  - Cerebral venous sinus thrombosis [Unknown]
  - Cerebral mass effect [Unknown]
  - Mental status changes [Unknown]

NARRATIVE: CASE EVENT DATE: 20210101
